FAERS Safety Report 7604083-7 (Version None)
Quarter: 2011Q3

REPORT INFORMATION
  Report Type: 
  Country: None (occurrence: None)
  Receive Date: 20110712
  Receipt Date: 20110707
  Transmission Date: 20111222
  Serious: Yes (Life-Threatening)
  Sender: FDA-Public Use
  Company Number: NO-ASTRAZENECA-2011SE40475

PATIENT
  Age: 56 Year
  Sex: Male

DRUGS (6)
  1. CETIRIZINE HCL [Concomitant]
     Route: 048
  2. BRILIQUE [Suspect]
     Indication: ANGINA UNSTABLE
     Route: 048
     Dates: start: 20110616
  3. LIPITOR [Concomitant]
     Route: 048
  4. SYMBICORT [Concomitant]
     Route: 055
  5. METOPROLOL SUCCINATE [Concomitant]
     Route: 048
  6. ASPIRIN [Concomitant]
     Route: 048

REACTIONS (2)
  - ACUTE RESPIRATORY DISTRESS SYNDROME [None]
  - POST PROCEDURAL HAEMORRHAGE [None]
